FAERS Safety Report 7166214-5 (Version None)
Quarter: 2010Q4

REPORT INFORMATION
  Report Type: 
  Country: None (occurrence: None)
  Receive Date: 20101201
  Receipt Date: 20101117
  Transmission Date: 20110411
  Serious: Yes (Hospitalization)
  Sender: FDA-Public Use
  Company Number: 2010P1002696

PATIENT
  Age: 53 Year
  Sex: Female
  Weight: 69.8539 kg

DRUGS (23)
  1. FENTANYL [Suspect]
     Indication: HAEMATURIA
     Dosage: 50 MCG/HR;Q3D;TDER ; 50 MCG/HR;Q2D;TDER
     Route: 062
     Dates: start: 20100601, end: 20100922
  2. FENTANYL [Suspect]
     Indication: HAEMATURIA
     Dosage: 50 MCG/HR;Q3D;TDER ; 50 MCG/HR;Q2D;TDER
     Route: 062
     Dates: start: 20100922
  3. FENTANYL-25 [Suspect]
     Indication: HAEMATURIA
     Dosage: Q3D;TDER ; 50 MCG/HR;Q2D;TDE
     Route: 062
     Dates: start: 20100324, end: 20100623
  4. FENTANYL-25 [Suspect]
     Indication: HAEMATURIA
     Dosage: Q3D;TDER ; 50 MCG/HR;Q2D;TDE
     Route: 062
     Dates: start: 20100623
  5. AMITRIPTYLINE [Concomitant]
  6. BUTALBITAL ACETAMINOPHEN AND CAFFEINE [Concomitant]
  7. CLIMARA [Concomitant]
  8. DEXILANT [Concomitant]
  9. EFFEXOR [Concomitant]
  10. ELMIRON [Concomitant]
  11. FLUDROCORTISONE [Concomitant]
  12. GELNIQUE 10% [Concomitant]
  13. IMITREX 5MG/0.5ML [Concomitant]
  14. LUNESTA [Concomitant]
  15. METOPROLOL TARTRATE [Concomitant]
  16. OMEPRAZOLE [Concomitant]
  17. OXYCODONE HCL AND ACETAMINOPHEN [Concomitant]
  18. DILAUDID [Concomitant]
  19. PHENAZOPYRIDINE [Concomitant]
  20. RESTASIS [Concomitant]
  21. SKELAXIN [Concomitant]
  22. VOLTAREN [Concomitant]
  23. GENTEAL GEL [Concomitant]

REACTIONS (8)
  - DRUG EFFECT DECREASED [None]
  - DYSKINESIA [None]
  - DYSTONIA [None]
  - HYPERHIDROSIS [None]
  - HYPOAESTHESIA [None]
  - PAIN IN EXTREMITY [None]
  - RESTLESSNESS [None]
  - WITHDRAWAL SYNDROME [None]
